FAERS Safety Report 18058072 (Version 4)
Quarter: 2020Q3

REPORT INFORMATION
  Report Type: Spontaneous
  Country: US (occurrence: US)
  Receive Date: 20200723
  Receipt Date: 20200826
  Transmission Date: 20201103
  Serious: No
  Sender: FDA-Public Use
  Company Number: US-HORIZON-TEP-0990-2020

PATIENT
  Age: 82 Year
  Sex: Female
  Weight: 62.82 kg

DRUGS (16)
  1. AMLODIPINE [Concomitant]
     Active Substance: AMLODIPINE BESYLATE
  2. FENOFIBRATE. [Concomitant]
     Active Substance: FENOFIBRATE
  3. SYNTHROID [Concomitant]
     Active Substance: LEVOTHYROXINE SODIUM
     Dosage: 112?G FRIDAY TO SUNDAY AND 125?G REST OF WEEK
  4. VITAMIN B COMPLEX [Concomitant]
     Active Substance: CYANOCOBALAMIN\DEXPANTHENOL\NIACINAMIDE\PYRIDOXINE HYDROCHLORIDE\RIBOFLAVIN 5^-PHOSPHATE SODIUM\THIAMINE HYDROCHLORIDE\VITAMIN B COMPLEX
  5. ROMYCIN [Concomitant]
  6. ALBUTEROL. [Concomitant]
     Active Substance: ALBUTEROL
  7. KEPPRA [Concomitant]
     Active Substance: LEVETIRACETAM
  8. TRILOG [Concomitant]
  9. VITAMIN B12 [Concomitant]
     Active Substance: CYANOCOBALAMIN
  10. TEPEZZA [Suspect]
     Active Substance: TEPROTUMUMAB-TRBW
     Indication: ENDOCRINE OPHTHALMOPATHY
     Dosage: 20MG/KG IV THREE TIMES WEEKLY
     Route: 042
  11. MICROZIDE [Concomitant]
     Active Substance: HYDROCHLOROTHIAZIDE
  12. PAROXETINE. [Concomitant]
     Active Substance: PAROXETINE
  13. METOPROLOL. [Concomitant]
     Active Substance: METOPROLOL
  14. DUONEB [Concomitant]
     Active Substance: ALBUTEROL SULFATE\IPRATROPIUM BROMIDE
  15. VITAMIN D3 [Concomitant]
     Active Substance: CHOLECALCIFEROL
  16. WARFARIN [Concomitant]
     Active Substance: WARFARIN

REACTIONS (6)
  - Fatigue [Unknown]
  - Neuropsychiatric symptoms [Unknown]
  - Amnesia [Unknown]
  - Condition aggravated [Unknown]
  - Confusional state [Unknown]
  - Somnolence [Unknown]
